FAERS Safety Report 21401226 (Version 1)
Quarter: 2022Q4

REPORT INFORMATION
  Report Type: Report from Study
  Country: GB (occurrence: GB)
  Receive Date: 20221003
  Receipt Date: 20221003
  Transmission Date: 20230113
  Serious: Yes (Hospitalization, Other)
  Sender: FDA-Public Use
  Company Number: GB-BRISTOL-MYERS SQUIBB COMPANY-2022-065592

PATIENT
  Age: 53 Year
  Sex: Female

DRUGS (22)
  1. NIVOLUMAB [Suspect]
     Active Substance: NIVOLUMAB
     Indication: Bone sarcoma
     Route: 065
     Dates: start: 20220315
  2. NIVOLUMAB [Suspect]
     Active Substance: NIVOLUMAB
     Route: 042
     Dates: start: 20220329, end: 20220812
  3. SUNITINIB MALATE [Suspect]
     Active Substance: SUNITINIB MALATE
     Indication: Bone sarcoma
     Route: 048
     Dates: start: 20220315
  4. LEVOTHYROXINE SODIUM [Concomitant]
     Active Substance: LEVOTHYROXINE SODIUM
     Indication: Hypothyroidism
     Route: 065
     Dates: start: 20220302
  5. HYDROCORTISON [HYDROCORTISONE SODIUM PHOSPHATE] [Concomitant]
     Indication: Hypothyroidism
     Route: 061
     Dates: start: 20220526
  6. HYDROCORTISON [HYDROCORTISONE SODIUM PHOSPHATE] [Concomitant]
     Indication: Angular cheilitis
  7. POLYETHYLENE GLYCOLS [Concomitant]
     Active Substance: POLYETHYLENE GLYCOLS
     Indication: Constipation
     Route: 048
  8. ZEROBASE [PARAFFIN] [Concomitant]
     Indication: Dry skin
     Route: 061
     Dates: start: 20220413
  9. LACTULOSE [Concomitant]
     Active Substance: LACTULOSE
     Indication: Product used for unknown indication
     Dosage: OD-BD AS NEEDED
     Route: 065
     Dates: start: 20220413
  10. LANSOPRAZOLE [Concomitant]
     Active Substance: LANSOPRAZOLE
     Indication: Product used for unknown indication
     Dosage: OD-BD AS NEEDED
     Route: 065
     Dates: start: 20220413
  11. CHLORHEXIDINE HYDROCHLORIDE\NEOMYCIN SULFATE [Concomitant]
     Active Substance: CHLORHEXIDINE HYDROCHLORIDE\NEOMYCIN SULFATE
     Indication: Product used for unknown indication
     Route: 061
     Dates: start: 20220329
  12. VITAMIN D NOS [Concomitant]
     Active Substance: VITAMIN D NOS
     Indication: Nutritional supplementation
     Dosage: 1000 UNITS ONCE DAILY
  13. CHLORHEXIDINE GLUCONATE [Concomitant]
     Active Substance: CHLORHEXIDINE GLUCONATE
     Indication: Product used for unknown indication
     Dosage: FREE MOUTH WASH
  14. HYDROMOL [EMULSIFYING WAX;PARAFFIN SOFT] [Concomitant]
     Indication: Product used for unknown indication
     Dosage: UREA CREAM 11%
     Dates: start: 20220513
  15. HYPROMELLOSES [Concomitant]
     Active Substance: HYPROMELLOSES
     Indication: Dry eye
     Dates: start: 20220526
  16. CETIRIZINE [Concomitant]
     Active Substance: CETIRIZINE HYDROCHLORIDE
     Indication: Pruritus
     Dosage: AS REQUIRED
     Dates: start: 20220603
  17. COVID-19 VACCINE [Concomitant]
     Indication: Prophylaxis
     Dosage: BOOSTER DOSE ONCE
     Dates: start: 20220709
  18. VISIONACE [Concomitant]
     Indication: Product used for unknown indication
     Dates: start: 20220512
  19. ANUSOL [ZINC SULFATE] [Concomitant]
     Indication: Haemorrhoids
     Route: 061
     Dates: start: 20220716
  20. DIBUCAINE\ESCULIN\HYDROCORTISONE\NEOMYCIN [Concomitant]
     Active Substance: DIBUCAINE\ESCULIN\HYDROCORTISONE\NEOMYCIN
     Indication: Haemorrhoids
     Dates: start: 20220728
  21. FUROSEMIDE [Concomitant]
     Active Substance: FUROSEMIDE
     Indication: Oedema peripheral
  22. METHYLPREDNISOLONE [Concomitant]
     Active Substance: METHYLPREDNISOLONE
     Indication: Product used for unknown indication
     Dosage: 1-2 MG/KG/DAY AND PPI COVER
     Dates: start: 20220821

REACTIONS (4)
  - Diarrhoea [Unknown]
  - Hypotension [Unknown]
  - Dyspnoea [Recovering/Resolving]
  - Pneumonitis [Recovering/Resolving]

NARRATIVE: CASE EVENT DATE: 20220624
